FAERS Safety Report 20937022 (Version 2)
Quarter: 2025Q2

REPORT INFORMATION
  Report Type: Spontaneous
  Country: US (occurrence: US)
  Receive Date: 20220609
  Receipt Date: 20250523
  Transmission Date: 20250717
  Serious: Yes (Hospitalization)
  Sender: ROCHE
  Company Number: US-ROCHE-2888516

PATIENT
  Sex: Female

DRUGS (3)
  1. ACTEMRA [Suspect]
     Active Substance: TOCILIZUMAB
     Indication: Rheumatoid arthritis
     Dosage: FREQUENCY TEXT:1?STRENGTH: 162 MG/0.9 M
     Route: 058
     Dates: start: 201510
  2. ACTEMRA [Suspect]
     Active Substance: TOCILIZUMAB
     Dosage: FREQUENCY TEXT:1?STRENGTH: 162 MG/0.9 M
     Route: 058
     Dates: start: 201810
  3. MEDROL [Concomitant]
     Active Substance: METHYLPREDNISOLONE

REACTIONS (7)
  - Arthralgia [Unknown]
  - Joint swelling [Unknown]
  - Fall [Unknown]
  - Haematoma [Unknown]
  - White blood cell count increased [Unknown]
  - Infection [Unknown]
  - Muscular weakness [Unknown]
